FAERS Safety Report 7885447-3 (Version None)
Quarter: 2011Q4

REPORT INFORMATION
  Report Type: 
  Country: None (occurrence: None)
  Receive Date: 20111102
  Receipt Date: 20111020
  Transmission Date: 20120403
  Serious: Yes (Other)
  Sender: FDA-Public Use
  Company Number: CA-ROCHE-775669

PATIENT
  Sex: Male

DRUGS (12)
  1. AVASTIN [Suspect]
     Route: 042
  2. AVASTIN [Suspect]
     Route: 042
  3. AVASTIN [Suspect]
     Route: 042
  4. VITAMIN D [Concomitant]
  5. ASCORBIC ACID [Concomitant]
  6. PANTOPRAZOLE SODIUM [Concomitant]
  7. AVASTIN [Suspect]
     Route: 042
     Dates: start: 20110201, end: 20110503
  8. KEPPRA [Concomitant]
  9. AVASTIN [Suspect]
     Indication: GLIOBLASTOMA
     Dosage: FORM INFUSION
     Route: 042
  10. AVASTIN [Suspect]
     Route: 042
  11. DEXAMETHASONE [Concomitant]
  12. VALCYTE [Concomitant]

REACTIONS (12)
  - HEADACHE [None]
  - SPEECH DISORDER [None]
  - CONFUSIONAL STATE [None]
  - INFLUENZA LIKE ILLNESS [None]
  - BRONCHITIS [None]
  - EYE INFECTION [None]
  - NAUSEA [None]
  - JOINT RANGE OF MOTION DECREASED [None]
  - HEMIPARESIS [None]
  - VOMITING [None]
  - BRAIN NEOPLASM [None]
  - FATIGUE [None]
